FAERS Safety Report 10219203 (Version 1)
Quarter: 2014Q2

REPORT INFORMATION
  Report Type: Spontaneous
  Country: US (occurrence: US)
  Receive Date: 20140605
  Receipt Date: 20140605
  Transmission Date: 20141212
  Serious: No
  Sender: FDA-Public Use
  Company Number: US-BAYER-2014-081288

PATIENT
  Sex: Female

DRUGS (1)
  1. CIPRO [Suspect]
     Dosage: 500 MG, BID
     Dates: start: 20140524

REACTIONS (1)
  - Drug dose omission [None]
